FAERS Safety Report 5860006-2 (Version None)
Quarter: 2008Q3

REPORT INFORMATION
  Report Type: 
  Country: None (occurrence: None)
  Receive Date: 20080827
  Receipt Date: 20080821
  Transmission Date: 20090109
  Serious: Yes (Other)
  Sender: FDA-Public Use
  Company Number: AU-ASTRAZENECA-2008AP06469

PATIENT
  Age: 60 Year
  Sex: Female

DRUGS (1)
  1. NAROPIN [Suspect]
     Indication: NERVE BLOCK
     Dosage: 5 X 20ML

REACTIONS (1)
  - DRUG TOXICITY [None]
